FAERS Safety Report 14577991 (Version 1)
Quarter: 2018Q1

REPORT INFORMATION
  Report Type: Spontaneous
  Country: US (occurrence: US)
  Receive Date: 20180222
  Receipt Date: 20180222
  Transmission Date: 20180509
  Serious: Yes (Other)
  Sender: FDA-Public Use
  Company Number: None

PATIENT
  Age: 21 Year
  Sex: Male
  Weight: 63.5 kg

DRUGS (1)
  1. PRE-PEN [Suspect]
     Active Substance: BENZYLPENICILLOYL POLYLYSINE
     Indication: ALLERGY TEST
     Dosage: 6.0 X 10E-5 M SINGLE USE SCRATCH TEST AND INTRADERMAL
     Route: 023
     Dates: start: 201706

REACTIONS (2)
  - Skin test negative [None]
  - Anaphylactic reaction [None]

NARRATIVE: CASE EVENT DATE: 201711
